FAERS Safety Report 7234746-7 (Version None)
Quarter: 2011Q1

REPORT INFORMATION
  Report Type: 
  Country: None (occurrence: None)
  Receive Date: 20110120
  Receipt Date: 20090224
  Transmission Date: 20110831
  Serious: No
  Sender: FDA-Public Use
  Company Number: 2009BI006189

PATIENT
  Age: 48 Year
  Sex: Female

DRUGS (1)
  1. TYSABRI [Suspect]
     Indication: MULTIPLE SCLEROSIS
     Route: 042
     Dates: start: 20090114, end: 20090223

REACTIONS (24)
  - MULTIPLE SCLEROSIS RELAPSE [None]
  - RASH PRURITIC [None]
  - HEART RATE DECREASED [None]
  - INJECTION SITE ERYTHEMA [None]
  - HYPOAESTHESIA FACIAL [None]
  - INSOMNIA [None]
  - INFUSION SITE PAIN [None]
  - THROAT IRRITATION [None]
  - FEELING ABNORMAL [None]
  - EYE PAIN [None]
  - INFUSION SITE ANAESTHESIA [None]
  - HYPERSENSITIVITY [None]
  - TACHYCARDIA [None]
  - PALPITATIONS [None]
  - ASTHENOPIA [None]
  - INFUSION SITE HAEMATOMA [None]
  - DYSPHAGIA [None]
  - COGNITIVE DISORDER [None]
  - INFUSION SITE PRURITUS [None]
  - STRABISMUS [None]
  - INFUSION RELATED REACTION [None]
  - ERYTHEMA [None]
  - INJECTION SITE HAEMATOMA [None]
  - DIZZINESS [None]
